FAERS Safety Report 19574426 (Version 1)
Quarter: 2021Q3

REPORT INFORMATION
  Report Type: Spontaneous
  Country: CZ (occurrence: CZ)
  Receive Date: 20210719
  Receipt Date: 20210719
  Transmission Date: 20211014
  Serious: Yes (Hospitalization, Other)
  Sender: FDA-Public Use
  Company Number: CZ-TEVA-2021-CZ-1932599

PATIENT
  Sex: Female

DRUGS (1)
  1. ESCITALOPRAM [Suspect]
     Active Substance: ESCITALOPRAM OXALATE
     Route: 065

REACTIONS (5)
  - Drug ineffective [Unknown]
  - Psychiatric decompensation [Recovered/Resolved]
  - Delusion [Recovered/Resolved]
  - Hallucination, auditory [Recovered/Resolved]
  - Behaviour disorder [Recovered/Resolved]
